FAERS Safety Report 8957045 (Version 2)
Quarter: 2012Q4

REPORT INFORMATION
  Report Type: Report from Study
  Country: DE (occurrence: DE)
  Receive Date: 20121210
  Receipt Date: 20121220
  Transmission Date: 20130627
  Serious: Yes (Death, Hospitalization)
  Sender: FDA-Public Use
  Company Number: DE-CELGENEUS-062-21660-12113922

PATIENT
  Age: 63 Year
  Sex: Female

DRUGS (3)
  1. ABRAXANE [Suspect]
     Indication: METASTATIC BREAST CANCER
     Dosage: 150 milligram/sq. meter
     Route: 041
     Dates: start: 20110921
  2. ABRAXANE [Suspect]
     Dosage: 120 milligram/sq. meter
     Route: 041
     Dates: end: 20111129
  3. ZOMETA [Concomitant]
     Indication: DRUG USE FOR UNKNOWN INDICATION
     Route: 065

REACTIONS (2)
  - Breast cancer metastatic [Fatal]
  - General physical health deterioration [Recovered/Resolved]
